FAERS Safety Report 7592887-9 (Version None)
Quarter: 2011Q3

REPORT INFORMATION
  Report Type: 
  Country: None (occurrence: None)
  Receive Date: 20110706
  Receipt Date: 20110701
  Transmission Date: 20111222
  Serious: Yes (Other)
  Sender: FDA-Public Use
  Company Number: US-PFIZER INC-2011149726

PATIENT
  Age: 34 Year
  Sex: Female

DRUGS (1)
  1. VERAPAMIL HCL [Suspect]

REACTIONS (4)
  - HAEMORRHAGIC STROKE [None]
  - CEREBRAL INFARCTION [None]
  - ISCHAEMIC STROKE [None]
  - PULMONARY EMBOLISM [None]
